FAERS Safety Report 20884213 (Version 1)
Quarter: 2022Q2

REPORT INFORMATION
  Report Type: Spontaneous
  Country: CN (occurrence: CN)
  Receive Date: 20220527
  Receipt Date: 20220527
  Transmission Date: 20220721
  Serious: Yes (Other)
  Sender: FDA-Public Use
  Company Number: CN-PFIZER INC-202200767288

PATIENT
  Age: 3 Year
  Sex: Male
  Weight: 12 kg

DRUGS (2)
  1. METHYLPREDNISOLONE SODIUM SUCCINATE [Suspect]
     Active Substance: METHYLPREDNISOLONE SODIUM SUCCINATE
     Indication: Tracheitis
     Dosage: 30 MG, 1X/DAY
     Route: 041
     Dates: start: 20210927, end: 20210927
  2. DEXTROSE [Concomitant]
     Active Substance: DEXTROSE
     Indication: Vehicle solution use
     Dosage: 50 ML
     Dates: start: 20210927, end: 20210927

REACTIONS (2)
  - Rash [Recovering/Resolving]
  - Eyelid rash [Recovering/Resolving]

NARRATIVE: CASE EVENT DATE: 20210927
